FAERS Safety Report 8846758 (Version 1)
Quarter: 2012Q4

REPORT INFORMATION
  Report Type: Spontaneous
  Country: US (occurrence: None)
  Receive Date: 20121018
  Receipt Date: 20121018
  Transmission Date: 20130627
  Serious: No
  Sender: FDA-Public Use
  Company Number: None

PATIENT
  Age: 61 Year
  Weight: 90.72 kg

DRUGS (1)
  1. METHYLPREDNISOLONE [Suspect]
     Indication: PAIN
     Dates: start: 19960724, end: 20120620

REACTIONS (1)
  - No adverse event [None]
